FAERS Safety Report 19744374 (Version 1)
Quarter: 2021Q3

REPORT INFORMATION
  Report Type: Spontaneous
  Country: US (occurrence: US)
  Receive Date: 20210825
  Receipt Date: 20210825
  Transmission Date: 20211014
  Serious: No
  Sender: FDA-Public Use
  Company Number: US-PERRIGO-20US013778

PATIENT
  Age: 45 Year
  Sex: Female
  Weight: 61.22 kg

DRUGS (5)
  1. EVAMIST [Suspect]
     Active Substance: ESTRADIOL
     Indication: HORMONE REPLACEMENT THERAPY
     Dosage: 4.59 MG, EVERY MORNING
     Route: 062
     Dates: start: 202003, end: 20200831
  2. EVAMIST [Suspect]
     Active Substance: ESTRADIOL
     Indication: MOOD SWINGS
  3. EVAMIST [Suspect]
     Active Substance: ESTRADIOL
     Indication: HOT FLUSH
     Dosage: 4.59 MG, EVERY MORNING
     Route: 062
     Dates: start: 20200901, end: 20200904
  4. EVAMIST [Suspect]
     Active Substance: ESTRADIOL
     Indication: INSOMNIA
  5. EVAMIST [Suspect]
     Active Substance: ESTRADIOL
     Indication: ALOPECIA

REACTIONS (1)
  - Product dose omission issue [Unknown]

NARRATIVE: CASE EVENT DATE: 20200904
